FAERS Safety Report 7269337-5 (Version None)
Quarter: 2011Q1

REPORT INFORMATION
  Report Type: 
  Country: None (occurrence: None)
  Receive Date: 20110124
  Receipt Date: 20110111
  Transmission Date: 20110831
  Serious: No
  Sender: FDA-Public Use
  Company Number: DSA_44610_2011

PATIENT
  Age: 12 Month

DRUGS (1)
  1. HERBESSER (HERBESSER TANABE - DILTIAZEM HYDROCHLORIDE) (NOT SPECIFIED) [Suspect]
     Indication: PRODUCT USED FOR UNKNOWN INDICATION
     Dosage: (100 MG QD ORAL)
     Route: 048
     Dates: start: 20101222, end: 20101222

REACTIONS (1)
  - NO ADVERSE EVENT [None]
